FAERS Safety Report 7918680-2 (Version None)
Quarter: 2011Q4

REPORT INFORMATION
  Report Type: 
  Country: None (occurrence: None)
  Receive Date: 20111116
  Receipt Date: 20111024
  Transmission Date: 20120403
  Serious: Yes (Other)
  Sender: FDA-Public Use
  Company Number: CHPA2011US11425

PATIENT
  Age: 31 Year
  Sex: Female

DRUGS (1)
  1. NICOTINE [Suspect]
     Indication: SMOKING CESSATION THERAPY
     Dosage: 21 MG, QD
     Route: 062
     Dates: start: 20110801, end: 20110801

REACTIONS (5)
  - CONSTIPATION [None]
  - PYREXIA [None]
  - RASH [None]
  - CHILLS [None]
  - VOMITING [None]
